FAERS Safety Report 4583344-2 (Version None)
Quarter: 2005Q1

REPORT INFORMATION
  Report Type: 
  Country: None (occurrence: None)
  Receive Date: 20050125
  Receipt Date: 20041028
  Transmission Date: 20050727
  Serious: No
  Sender: FDA-Public Use
  Company Number: USA031255551

PATIENT
  Age: 87 Year
  Sex: Female
  Weight: 58 kg

DRUGS (6)
  1. FORTEO [Suspect]
     Indication: OSTEOPOROSIS
     Dosage: 20 UG/1 DAY
     Dates: start: 20031101
  2. LIPITOR [Concomitant]
  3. VITAMINS [Concomitant]
  4. OSCAL (CALCIUM CARBONATE) [Concomitant]
  5. CALMAG D [Concomitant]
  6. BIOGLAN SOLGAR SIBERIAN (GINSENG) [Concomitant]

REACTIONS (16)
  - BACK DISORDER [None]
  - CARPAL TUNNEL SYNDROME [None]
  - CONSTIPATION [None]
  - DIZZINESS [None]
  - FALL [None]
  - HYPERTENSION [None]
  - INJECTION SITE ERYTHEMA [None]
  - INJECTION SITE HAEMORRHAGE [None]
  - INJECTION SITE VESICLES [None]
  - MOTOR DYSFUNCTION [None]
  - NERVOUSNESS [None]
  - PAIN IN EXTREMITY [None]
  - PRURITUS [None]
  - SKIN DISORDER [None]
  - SKIN TIGHTNESS [None]
  - VEIN DISORDER [None]
